FAERS Safety Report 18041802 (Version 1)
Quarter: 2020Q3

REPORT INFORMATION
  Report Type: Spontaneous
  Country: US (occurrence: US)
  Receive Date: 20200720
  Receipt Date: 20200720
  Transmission Date: 20201103
  Serious: No
  Sender: FDA-Public Use
  Company Number: US-TEVA-2020-US-1801664

PATIENT
  Sex: Female

DRUGS (2)
  1. DIAZEPAM TEVA [Suspect]
     Active Substance: DIAZEPAM
     Indication: IRRITABLE BOWEL SYNDROME
     Route: 065
  2. DIAZEPAM TEVA [Suspect]
     Active Substance: DIAZEPAM
     Route: 065

REACTIONS (3)
  - Product formulation issue [Unknown]
  - Dysphonia [Unknown]
  - Drug ineffective [Unknown]

NARRATIVE: CASE EVENT DATE: 2020
